FAERS Safety Report 9321262 (Version 1)
Quarter: 2013Q2

REPORT INFORMATION
  Report Type: Spontaneous
  Country: US (occurrence: US)
  Receive Date: 20130531
  Receipt Date: 20130531
  Transmission Date: 20140414
  Serious: No
  Sender: FDA-Public Use
  Company Number: US-JNJFOC-20130512653

PATIENT
  Age: 50 Year
  Sex: Female

DRUGS (6)
  1. DURAGESIC [Suspect]
     Indication: FIBROMYALGIA
     Dosage: ONCE EVERY 48-72 HOURS
     Route: 062
     Dates: start: 20120418
  2. DURAGESIC [Suspect]
     Indication: BACK PAIN
     Dosage: ONCE EVERY 48-72 HOURS
     Route: 062
     Dates: start: 20120418
  3. ADDERALL [Suspect]
     Indication: PRODUCT USED FOR UNKNOWN INDICATION
     Route: 048
  4. HYDROCODONE [Concomitant]
     Indication: BREAKTHROUGH PAIN
     Route: 048
  5. LYRICA [Concomitant]
     Route: 048
  6. PRISTIQ [Concomitant]
     Route: 048

REACTIONS (12)
  - Nausea [Not Recovered/Not Resolved]
  - Abdominal pain upper [Not Recovered/Not Resolved]
  - Pain [Not Recovered/Not Resolved]
  - Feeling of body temperature change [Not Recovered/Not Resolved]
  - Headache [Not Recovered/Not Resolved]
  - Blood pressure increased [Not Recovered/Not Resolved]
  - Wrong technique in drug usage process [Not Recovered/Not Resolved]
  - Drug effect decreased [Not Recovered/Not Resolved]
  - Product packaging issue [Unknown]
  - Product quality issue [Unknown]
  - Blood pressure fluctuation [Not Recovered/Not Resolved]
  - Wrong technique in drug usage process [Not Recovered/Not Resolved]
